FAERS Safety Report 4996032-5 (Version None)
Quarter: 2006Q2

REPORT INFORMATION
  Report Type: 
  Country: None (occurrence: None)
  Receive Date: 20060504
  Receipt Date: 20060413
  Transmission Date: 20061013
  Serious: Yes (Life-Threatening, Hospitalization)
  Sender: FDA-Public Use
  Company Number: 222988

PATIENT
  Age: 68 Year
  Sex: Male
  Weight: 172 kg

DRUGS (2)
  1. AVASTIN [Suspect]
     Indication: METASTATIC RENAL CELL CARCINOMA
     Dosage: 10 MG/KG, INTRAVENOUS
     Route: 042
     Dates: start: 20051123
  2. LEVOTHYROXINE SODIUM [Concomitant]

REACTIONS (6)
  - ANAEMIA [None]
  - MALIGNANT NEOPLASM PROGRESSION [None]
  - METASTASES TO LARGE INTESTINE [None]
  - METASTASES TO PERITONEUM [None]
  - METASTATIC RENAL CELL CARCINOMA [None]
  - RECTAL HAEMORRHAGE [None]
